FAERS Safety Report 7740719-8 (Version None)
Quarter: 2011Q3

REPORT INFORMATION
  Report Type: 
  Country: None (occurrence: None)
  Receive Date: 20110909
  Receipt Date: 20110831
  Transmission Date: 20111222
  Serious: Yes (Hospitalization)
  Sender: FDA-Public Use
  Company Number: JP-JNJFOC-20110901796

PATIENT
  Age: 70 Year
  Sex: Female
  Weight: 45 kg

DRUGS (20)
  1. METHOTREXATE [Concomitant]
     Route: 048
  2. ADALIMUMAB [Concomitant]
  3. REMICADE [Suspect]
     Route: 042
     Dates: start: 20110112
  4. REMICADE [Suspect]
     Route: 042
     Dates: start: 20110223
  5. REMICADE [Suspect]
     Route: 042
     Dates: start: 20110518
  6. PREDNISOLONE [Concomitant]
     Route: 048
     Dates: start: 20101201
  7. FOLIC ACID [Concomitant]
     Indication: PROPHYLAXIS
     Route: 048
  8. REMICADE [Suspect]
     Route: 042
     Dates: start: 20100811
  9. REMICADE [Suspect]
     Route: 042
     Dates: start: 20101201
  10. SULFAMETHOXAZOLE [Concomitant]
     Indication: PROPHYLAXIS
     Route: 048
  11. REMICADE [Suspect]
     Route: 042
     Dates: start: 20101006
  12. REMICADE [Suspect]
     Route: 042
     Dates: start: 20100428
  13. PREDNISOLONE [Concomitant]
     Route: 048
     Dates: start: 20101006, end: 20101130
  14. GLAKAY [Concomitant]
     Indication: RHEUMATOID ARTHRITIS
     Route: 048
  15. EVISTA [Concomitant]
     Indication: RHEUMATOID ARTHRITIS
     Route: 048
  16. ETANERCEPT [Concomitant]
  17. REMICADE [Suspect]
     Indication: RHEUMATOID ARTHRITIS
     Route: 042
     Dates: start: 20110406
  18. REMICADE [Suspect]
     Route: 042
     Dates: start: 20110629
  19. REMICADE [Suspect]
     Route: 042
     Dates: start: 20110101
  20. ELCITONIN [Concomitant]
     Indication: RHEUMATOID ARTHRITIS
     Route: 030

REACTIONS (2)
  - PUTAMEN HAEMORRHAGE [None]
  - HEMIPLEGIA [None]
